FAERS Safety Report 5062977-3 (Version None)
Quarter: 2006Q3

REPORT INFORMATION
  Report Type: 
  Country: None (occurrence: None)
  Receive Date: 20060724
  Receipt Date: 20060714
  Transmission Date: 20061208
  Serious: Yes (Life-Threatening, Disabling, Other)
  Sender: FDA-Public Use
  Company Number: 2005US000222

PATIENT
  Sex: Female
  Weight: 42.2 kg

DRUGS (3)
  1. PROTOPIC [Suspect]
     Indication: ECZEMA
     Dosage: TOPICAL
     Route: 061
     Dates: end: 20030101
  2. ELIDEL [Suspect]
     Indication: ECZEMA
  3. DIPROLENE CREAM (BETAMETHASONE DIPROPIONATE) [Concomitant]

REACTIONS (4)
  - APPLICATION SITE ERYTHEMA [None]
  - APPLICATION SITE WARMTH [None]
  - DRUG EFFECT DECREASED [None]
  - MYCOSIS FUNGOIDES [None]
